FAERS Safety Report 13163139 (Version 1)
Quarter: 2017Q1

REPORT INFORMATION
  Report Type: Spontaneous
  Country: US (occurrence: US)
  Receive Date: 20170129
  Receipt Date: 20170129
  Transmission Date: 20170428
  Serious: Yes (Death)
  Sender: FDA-Public Use
  Company Number: None

PATIENT
  Age: 64 Year
  Sex: Female
  Weight: 90 kg

DRUGS (3)
  1. CALCIUM [Concomitant]
     Active Substance: CALCIUM
  2. VALSARTIN [Concomitant]
  3. ABRAXANE [Suspect]
     Active Substance: PACLITAXEL
     Indication: HEPATIC CANCER
     Dates: start: 20161207, end: 20161207

REACTIONS (8)
  - Blood lactic acid increased [None]
  - Constipation [None]
  - Sepsis [None]
  - Blood pressure decreased [None]
  - Multiple organ dysfunction syndrome [None]
  - Muscle spasms [None]
  - Anaemia [None]
  - Renal disorder [None]

NARRATIVE: CASE EVENT DATE: 20161207
